FAERS Safety Report 6305511-X (Version None)
Quarter: 2009Q3

REPORT INFORMATION
  Report Type: 
  Country: None (occurrence: None)
  Receive Date: 20090811
  Receipt Date: 20090730
  Transmission Date: 20100115
  Serious: Yes (Death, Other)
  Sender: FDA-Public Use
  Company Number: US-TYCO HEALTHCARE/MALLINCKRODT-T200901439

PATIENT

DRUGS (2)
  1. MORPHINE [Suspect]
     Dosage: UNK
     Route: 051
  2. LANOXIN [Suspect]
     Dosage: 2 AMPULES

REACTIONS (3)
  - DRUG NAME CONFUSION [None]
  - RESPIRATORY DEPRESSION [None]
  - WRONG DRUG ADMINISTERED [None]
